FAERS Safety Report 16367071 (Version 1)
Quarter: 2019Q2

REPORT INFORMATION
  Report Type: Spontaneous
  Country: US (occurrence: US)
  Receive Date: 20190422
  Receipt Date: 20190422
  Transmission Date: 20190711
  Serious: No
  Sender: FDA-Public Use
  Company Number: None

PATIENT
  Age: 71 Year
  Sex: Female

DRUGS (1)
  1. FONDAPARINUX 7.5MG/0.6ML PFS [Suspect]
     Active Substance: FONDAPARINUX
     Dates: start: 20160401

REACTIONS (3)
  - Haemorrhage [None]
  - Needle issue [None]
  - Product substitution issue [None]

NARRATIVE: CASE EVENT DATE: 20190422
